FAERS Safety Report 9907152 (Version 2)
Quarter: 2014Q1

REPORT INFORMATION
  Report Type: Spontaneous
  Country: US (occurrence: US)
  Receive Date: 20140218
  Receipt Date: 20140218
  Transmission Date: 20141002
  Serious: Yes (Other)
  Sender: FDA-Public Use
  Company Number: US-LUNDBECK-DKLU1093246

PATIENT
  Age: 4 Year
  Sex: Male
  Weight: 17 kg

DRUGS (5)
  1. SABRIL (TABLET) [Suspect]
     Indication: INFANTILE SPASMS
     Route: 048
     Dates: start: 20100118
  2. SABRIL (TABLET) [Suspect]
     Route: 048
  3. SABRIL (TABLET) [Suspect]
     Route: 048
  4. ONFI [Concomitant]
     Indication: CONVULSION
     Route: 048
     Dates: start: 20120117
  5. VIMPAT [Concomitant]
     Indication: CONVULSION
     Route: 048

REACTIONS (2)
  - Convulsion [Unknown]
  - Drug dose omission [Recovered/Resolved]
